FAERS Safety Report 6371305-2 (Version None)
Quarter: 2009Q3

REPORT INFORMATION
  Report Type: 
  Country: None (occurrence: None)
  Receive Date: 20090918
  Receipt Date: 20090907
  Transmission Date: 20100115
  Serious: Yes (Hospitalization)
  Sender: FDA-Public Use
  Company Number: 8051970

PATIENT
  Age: 74 Year
  Sex: Female

DRUGS (5)
  1. KEPPRA [Suspect]
     Indication: CONVULSION
     Dosage: 250 MG 2/D PO
     Route: 048
     Dates: start: 20090503
  2. TAVANIC [Suspect]
     Indication: ANTIBIOTIC THERAPY
     Dosage: 500 MG 2/D PO
     Route: 048
     Dates: start: 20090503, end: 20090514
  3. URBANYL [Suspect]
     Indication: CONVULSION
     Dosage: 5 MG /D PO
     Route: 048
     Dates: start: 20090503
  4. LODOZ [Concomitant]
  5. LEVOTHYROXINE SODIUM [Concomitant]

REACTIONS (1)
  - ANGIOEDEMA [None]
